FAERS Safety Report 25257236 (Version 3)
Quarter: 2025Q3

REPORT INFORMATION
  Report Type: Spontaneous
  Country: JP (occurrence: JP)
  Receive Date: 20250430
  Receipt Date: 20250827
  Transmission Date: 20251021
  Serious: Yes (Other)
  Sender: ELI LILLY AND COMPANY
  Company Number: JP-ELI_LILLY_AND_COMPANY-JP202504022175

PATIENT
  Age: 58 Year
  Sex: Male
  Weight: 60.6 kg

DRUGS (6)
  1. OMVOH [Suspect]
     Active Substance: MIRIKIZUMAB-MRKZ
     Indication: Colitis ulcerative
     Route: 058
     Dates: start: 20240917, end: 20250401
  2. IMURAN [Suspect]
     Active Substance: AZATHIOPRINE
     Indication: Colitis ulcerative
     Dosage: 75 MG, DAILY
     Route: 048
     Dates: start: 20200421, end: 20250401
  3. LIALDA [Concomitant]
     Active Substance: MESALAMINE
     Indication: Colitis ulcerative
     Dosage: 4800 MG, DAILY
     Route: 048
     Dates: start: 20200407
  4. NEXIUM [Concomitant]
     Active Substance: ESOMEPRAZOLE MAGNESIUM
     Indication: Gastrooesophageal reflux disease
     Dosage: 20 MG, DAILY
     Route: 048
     Dates: start: 20250407
  5. SUCRALFATE [Concomitant]
     Active Substance: SUCRALFATE
     Indication: Nausea
     Dosage: 1 G, DAILY
     Route: 048
     Dates: start: 20240227, end: 20240415
  6. PENTASA [Concomitant]
     Active Substance: MESALAMINE
     Indication: Colitis ulcerative
     Dosage: 1 G, DAILY
     Dates: start: 20200421, end: 20241111

REACTIONS (2)
  - Mantle cell lymphoma [Unknown]
  - Injection site erythema [Recovering/Resolving]

NARRATIVE: CASE EVENT DATE: 20241112
